FAERS Safety Report 14608004 (Version 1)
Quarter: 2018Q1

REPORT INFORMATION
  Report Type: Spontaneous
  Country: PL (occurrence: PL)
  Receive Date: 20180307
  Receipt Date: 20180307
  Transmission Date: 20180509
  Serious: Yes (Hospitalization)
  Sender: FDA-Public Use
  Company Number: PL-GLAXOSMITHKLINE-PL2018037908

PATIENT
  Age: 12 Year
  Sex: Female

DRUGS (4)
  1. TRAVOGEN [Suspect]
     Active Substance: ISOCONAZOLE NITRATE
     Indication: BODY TINEA
     Dosage: UNK
     Route: 061
  2. ELOCOM [Concomitant]
     Active Substance: MOMETASONE FUROATE
     Indication: DERMATITIS CONTACT
     Dosage: UNK, BID
     Route: 061
  3. LAMISIL [Suspect]
     Active Substance: TERBINAFINE HYDROCHLORIDE
     Indication: DERMATOPHYTOSIS OF NAIL
     Dosage: 250 MG, QD
     Route: 065
  4. LAMISIL [Suspect]
     Active Substance: TERBINAFINE HYDROCHLORIDE
     Indication: BODY TINEA

REACTIONS (6)
  - Erythema [Recovering/Resolving]
  - Skin swelling [Recovering/Resolving]
  - Rash pustular [Recovering/Resolving]
  - Skin lesion [Recovering/Resolving]
  - Dermatitis contact [Recovering/Resolving]
  - Drug hypersensitivity [Recovering/Resolving]
